FAERS Safety Report 21006240 (Version 4)
Quarter: 2022Q3

REPORT INFORMATION
  Report Type: Report from Study
  Country: IL (occurrence: IL)
  Receive Date: 20220624
  Receipt Date: 20220927
  Transmission Date: 20221027
  Serious: Yes (Hospitalization, Other)
  Sender: FDA-Public Use
  Company Number: IL-TAKEDA-2021TUS053518

PATIENT
  Age: 36 Year
  Sex: Female
  Weight: 43 kg

DRUGS (2)
  1. LANADELUMAB [Suspect]
     Active Substance: LANADELUMAB
     Indication: Product used for unknown indication
     Dosage: 108 MILLIGRAM, Q2WEEKS
     Route: 058
  2. LANADELUMAB [Suspect]
     Active Substance: LANADELUMAB
     Dosage: 300 MILLIGRAM, Q2WEEKS
     Route: 058
     Dates: start: 20210811

REACTIONS (11)
  - Benign breast neoplasm [Recovered/Resolved]
  - Hereditary angioedema [Recovered/Resolved]
  - Post procedural complication [Recovering/Resolving]
  - Implant site infection [Recovered/Resolved]
  - General physical health deterioration [Recovering/Resolving]
  - Decreased appetite [Recovering/Resolving]
  - Weight decreased [Recovering/Resolving]
  - Underweight [Recovering/Resolving]
  - Impaired healing [Recovering/Resolving]
  - Precancerous condition [Recovering/Resolving]
  - Dermatitis contact [Recovering/Resolving]

NARRATIVE: CASE EVENT DATE: 20210820
